FAERS Safety Report 9929451 (Version 2)
Quarter: 2014Q1

REPORT INFORMATION
  Report Type: Spontaneous
  Country: BR (occurrence: BR)
  Receive Date: 20140227
  Receipt Date: 20140227
  Transmission Date: 20141002
  Serious: Yes (Other)
  Sender: FDA-Public Use
  Company Number: PHHY2014BR001843

PATIENT
  Sex: Female
  Weight: 68 kg

DRUGS (1)
  1. GENTEAL [Suspect]
     Indication: EYE LUBRICATION THERAPY
     Dosage: SIX DROPS DAILY
     Route: 047

REACTIONS (2)
  - Retinal detachment [Unknown]
  - Dry eye [Unknown]
